FAERS Safety Report 7001851-X (Version None)
Quarter: 2010Q3

REPORT INFORMATION
  Report Type: 
  Country: None (occurrence: None)
  Receive Date: 20100920
  Receipt Date: 20080124
  Transmission Date: 20110219
  Serious: Yes (Other)
  Sender: FDA-Public Use
  Company Number: US-ASTRAZENECA-2007UW14892

PATIENT
  Age: 583 Month
  Sex: Male
  Weight: 78 kg

DRUGS (14)
  1. SEROQUEL [Suspect]
     Indication: SLEEP DISORDER
     Route: 048
     Dates: start: 20030801, end: 20060919
  2. SEROQUEL [Suspect]
     Route: 048
     Dates: start: 20050406
  3. ULTRAM [Concomitant]
     Indication: BACK PAIN
  4. LEXAPRO [Concomitant]
     Dosage: STRENGTH-  10 MG, 20 MG  DOSE-  10MG-20MG DAILY
  5. ZOCOR [Concomitant]
  6. NEXIUM [Concomitant]
  7. AMBIEN [Concomitant]
     Indication: INSOMNIA
  8. NITROGLYCERIN [Concomitant]
     Indication: CHEST PAIN
     Dosage: 0.4 MG TWO SUBLINGUAL TABS
     Route: 060
  9. PLAVIX [Concomitant]
  10. ENALAPRIL [Concomitant]
  11. ASPIRIN [Concomitant]
  12. PHENOBARBITAL [Concomitant]
  13. ALTACE [Concomitant]
  14. TOPROL-XL [Concomitant]

REACTIONS (1)
  - PANCREATITIS ACUTE [None]
